FAERS Safety Report 9487540 (Version 1)
Quarter: 2013Q3

REPORT INFORMATION
  Report Type: Spontaneous
  Country: IE (occurrence: IE)
  Receive Date: 20130829
  Receipt Date: 20130829
  Transmission Date: 20140515
  Serious: Yes (Other)
  Sender: FDA-Public Use
  Company Number: IE-NAPPMUNDI-GBR-2013-0015415

PATIENT
  Sex: Female

DRUGS (1)
  1. BUTRANS 5 MG TRANSDERMAL PATCH [Suspect]
     Indication: PRODUCT USED FOR UNKNOWN INDICATION
     Dosage: 5 MCG, UNK
     Route: 062

REACTIONS (1)
  - Anger [Recovered/Resolved]
